FAERS Safety Report 6541358-7 (Version None)
Quarter: 2010Q1

REPORT INFORMATION
  Report Type: 
  Country: None (occurrence: None)
  Receive Date: 20100118
  Receipt Date: 20100108
  Transmission Date: 20100710
  Serious: Yes (Hospitalization)
  Sender: FDA-Public Use
  Company Number: PHHO2010US00615

PATIENT
  Sex: Male

DRUGS (1)
  1. CERTICAN [Suspect]
     Indication: ORGAN TRANSPLANT
     Dosage: 1 MG, UNK
     Route: 048
     Dates: start: 20060210

REACTIONS (6)
  - CATHETERISATION CARDIAC [None]
  - CHEST PAIN [None]
  - CORONARY ARTERY DISEASE [None]
  - IN-STENT CORONARY ARTERY RESTENOSIS [None]
  - LEFT VENTRICULAR DYSFUNCTION [None]
  - PYREXIA [None]
